FAERS Safety Report 17412633 (Version 1)
Quarter: 2020Q1

REPORT INFORMATION
  Report Type: Spontaneous
  Country: US (occurrence: US)
  Receive Date: 20200129
  Receipt Date: 20200129
  Transmission Date: 20200409
  Serious: Yes (Death)
  Sender: FDA-Public Use
  Company Number: None

PATIENT
  Age: 60 Year
  Sex: Female

DRUGS (13)
  1. ATENOLOL TAB [Concomitant]
     Active Substance: ATENOLOL
  2. GLIMEPIRIDE TAB [Concomitant]
  3. VITAMIN D3 CAP [Concomitant]
  4. GLATIRAMER 40MG/ML [Suspect]
     Active Substance: GLATIRAMER
     Indication: MULTIPLE SCLEROSIS
     Route: 058
     Dates: start: 20190419
  5. METFORMIN TAB [Concomitant]
  6. LISINOPRIL TAB [Concomitant]
  7. IMIPRAM HCL [Concomitant]
  8. B COMPLEX/C TAB [Concomitant]
  9. ASPIRIN. [Concomitant]
     Active Substance: ASPIRIN
  10. COQ10 CAP [Concomitant]
  11. AMLODIPINE TAB [Concomitant]
  12. MELOXICAM TAB [Concomitant]
  13. SIMVASTATIN TAB [Concomitant]
     Active Substance: SIMVASTATIN

REACTIONS (1)
  - Death [None]

NARRATIVE: CASE EVENT DATE: 20200117
